FAERS Safety Report 8202839-3 (Version None)
Quarter: 2012Q1

REPORT INFORMATION
  Report Type: 
  Country: None (occurrence: None)
  Receive Date: 20120312
  Receipt Date: 20120312
  Transmission Date: 20120608
  Serious: Yes (Other)
  Sender: FDA-Public Use
  Company Number: None

PATIENT
  Sex: Female
  Weight: 81.193 kg

DRUGS (2)
  1. B-COMPLEX ^50^ [Concomitant]
     Dosage: 50 MG.
     Route: 048
     Dates: start: 20120308, end: 20120308
  2. B COMPLEX ELX [Suspect]
     Indication: HYPOVITAMINOSIS
     Dosage: 50 MG.
     Route: 048
     Dates: start: 20120308, end: 20120308

REACTIONS (3)
  - PRODUCT ODOUR ABNORMAL [None]
  - PRODUCT CONTAMINATION MICROBIAL [None]
  - PAIN [None]
